FAERS Safety Report 10248187 (Version 1)
Quarter: 2014Q2

REPORT INFORMATION
  Report Type: Spontaneous
  Country: AM (occurrence: AM)
  Receive Date: 20140620
  Receipt Date: 20140620
  Transmission Date: 20141212
  Serious: Yes (Other)
  Sender: FDA-Public Use
  Company Number: PHHY2014AM071699

PATIENT
  Sex: Female

DRUGS (2)
  1. VALPROIC ACID [Suspect]
  2. PHENOBARBITONE [Concomitant]

REACTIONS (3)
  - Blood disorder [Unknown]
  - Pancytopenia [Unknown]
  - Thrombocytopenia [Unknown]
